FAERS Safety Report 7391401-0 (Version None)
Quarter: 2011Q1

REPORT INFORMATION
  Report Type: 
  Country: None (occurrence: None)
  Receive Date: 20110324
  Receipt Date: 20110314
  Transmission Date: 20110831
  Serious: Yes (Life-Threatening, Hospitalization, Other)
  Sender: FDA-Public Use
  Company Number: FK201100464

PATIENT
  Age: 24 Year
  Sex: Female

DRUGS (6)
  1. OXYTOCIN [Suspect]
     Indication: INDUCED LABOUR
     Dosage: 20, UNITS X 1, INTRAVENOUS (NOT OTHERWISE SPECIFIED) ; 10, INTRAMYOMETRIAL INJECTION X 3
     Route: 042
  2. FENTANYL [Concomitant]
  3. CARBOPROST (CARBOPROST) [Suspect]
     Indication: INDUCED LABOUR
     Dosage: 250 UG, INTRAMYOMETRIAL INJECTION X 3, INTRAVENOUS (NOT OTHERWISE SPECIFIED)
     Route: 042
  4. ATENOLOL [Concomitant]
  5. NIFEDIPINE [Concomitant]
  6. ALPHA METHYLDOPA (METHYLDOPA) [Concomitant]

REACTIONS (8)
  - APPARENT DEATH [None]
  - DYSARTHRIA [None]
  - CAESAREAN SECTION [None]
  - BRIEF PSYCHOTIC DISORDER, WITH POSTPARTUM ONSET [None]
  - BRONCHOSPASM [None]
  - DRUG EXPOSURE DURING PREGNANCY [None]
  - CARDIO-RESPIRATORY ARREST [None]
  - BRAIN OEDEMA [None]
